FAERS Safety Report 19425476 (Version 1)
Quarter: 2021Q2

REPORT INFORMATION
  Report Type: Spontaneous
  Country: IN (occurrence: IN)
  Receive Date: 20210617
  Receipt Date: 20210617
  Transmission Date: 20210717
  Serious: Yes (Other)
  Sender: FDA-Public Use
  Company Number: IN-CIPLA LTD.-2021IN04097

PATIENT

DRUGS (3)
  1. 5?FLUOROURACIL [FLUOROURACIL] [Suspect]
     Active Substance: FLUOROURACIL
     Indication: ADENOCARCINOMA OF COLON
     Dosage: 680 MG, BOLUS ON DAY 1, 2040 MG FOR 3 CYCLES
     Route: 040
  2. 5?FLUOROURACIL [FLUOROURACIL] [Suspect]
     Active Substance: FLUOROURACIL
     Dosage: 400 MG INFUSION OVER 2 DAYS, 1200 MG FOR 3 CYCLES
  3. IRINOTECAN [Suspect]
     Active Substance: IRINOTECAN
     Indication: ADENOCARCINOMA OF COLON
     Dosage: 300 MG ON DAY 1, FOR 3 CYCLES
     Route: 065

REACTIONS (2)
  - Administration site recall reaction [Recovered/Resolved]
  - Inflammation [Recovered/Resolved]
